FAERS Safety Report 8468770-3 (Version None)
Quarter: 2012Q2

REPORT INFORMATION
  Report Type: 
  Country: None (occurrence: None)
  Receive Date: 20120626
  Receipt Date: 20120621
  Transmission Date: 20120825
  Serious: Yes (Other)
  Sender: FDA-Public Use
  Company Number: US-NAPPMUNDI-USA-2011-0074303

PATIENT

DRUGS (4)
  1. ROXICET [Concomitant]
     Indication: BREAKTHROUGH PAIN
     Dosage: 5 MG, PRN
  2. OXYCONTIN [Suspect]
     Dosage: UNK UNK, SEE TEXT
     Dates: start: 20101101
  3. OXYCONTIN [Suspect]
     Indication: PAIN
     Dosage: UNK UNK, SEE TEXT
     Dates: start: 20101101
  4. ROXICET [Concomitant]
     Indication: INSOMNIA

REACTIONS (4)
  - DRUG EFFECT DECREASED [None]
  - SUICIDAL IDEATION [None]
  - UNEVALUABLE EVENT [None]
  - NEGATIVE THOUGHTS [None]
